FAERS Safety Report 15356740 (Version 1)
Quarter: 2018Q3

REPORT INFORMATION
  Report Type: Spontaneous
  Country: RU (occurrence: RU)
  Receive Date: 20180906
  Receipt Date: 20180906
  Transmission Date: 20181010
  Serious: Yes (Other)
  Sender: FDA-Public Use
  Company Number: RU-PFIZER INC-2018351480

PATIENT
  Age: 80 Year
  Sex: Female

DRUGS (2)
  1. MIDOKALM [Concomitant]
     Dosage: 50 MG, UNK
  2. CELEBREX [Suspect]
     Active Substance: CELECOXIB
     Indication: OSTEOCHONDROSIS
     Dosage: 200 MG, 2X/DAY
     Route: 048

REACTIONS (1)
  - Hypertensive crisis [Recovered/Resolved]
